FAERS Safety Report 13338961 (Version 1)
Quarter: 2017Q1

REPORT INFORMATION
  Report Type: Spontaneous
  Country: PL (occurrence: PL)
  Receive Date: 20170315
  Receipt Date: 20170315
  Transmission Date: 20170428
  Serious: Yes (Hospitalization)
  Sender: FDA-Public Use
  Company Number: PL-TEVA-748723ISR

PATIENT
  Age: 52 Year
  Sex: Male

DRUGS (8)
  1. CARVEDILOL. [Suspect]
     Active Substance: CARVEDILOL
     Dosage: 50 MILLIGRAM DAILY;
  2. AMLODIPINE [Suspect]
     Active Substance: AMLODIPINE BESYLATE
     Dosage: 10 MILLIGRAM DAILY; QPM
     Route: 065
  3. HYDROCHLOROTHIAZIDE. [Suspect]
     Active Substance: HYDROCHLOROTHIAZIDE
     Dosage: 12.5 MILLIGRAM DAILY; QAM
     Route: 065
  4. SPIRONOLACTONE. [Suspect]
     Active Substance: SPIRONOLACTONE
     Dosage: 25 MILLIGRAM DAILY; QAM
     Route: 065
  5. HYDROCHLOROTHIAZIDE. [Suspect]
     Active Substance: HYDROCHLOROTHIAZIDE
     Dosage: 25 MILLIGRAM DAILY;
  6. CARVEDILOL. [Suspect]
     Active Substance: CARVEDILOL
     Dosage: 25 MILLIGRAM DAILY;
     Route: 065
  7. ENALAPRIL [Suspect]
     Active Substance: ENALAPRIL
     Dosage: 5 MILLIGRAM DAILY; QPM
     Route: 065
  8. LACIDIPINE [Suspect]
     Active Substance: LACIDIPINE
     Route: 065

REACTIONS (3)
  - Hypertensive crisis [Recovered/Resolved]
  - Blood pressure abnormal [Unknown]
  - Blood pressure increased [Unknown]
